FAERS Safety Report 14094863 (Version 2)
Quarter: 2017Q4

REPORT INFORMATION
  Report Type: Report from Study
  Country: US (occurrence: US)
  Receive Date: 20171016
  Receipt Date: 20171016
  Transmission Date: 20180321
  Serious: Yes (Hospitalization, Other)
  Sender: FDA-Public Use
  Company Number: US-TEVA-767063USA

PATIENT
  Age: 67 Year
  Sex: Female

DRUGS (3)
  1. ALBUTEROL. [Concomitant]
     Active Substance: ALBUTEROL
     Route: 055
  2. PREDNISONE. [Concomitant]
     Active Substance: PREDNISONE
  3. CINQAIR [Suspect]
     Active Substance: RESLIZUMAB
     Indication: ASTHMA
     Route: 042
     Dates: start: 20170421

REACTIONS (12)
  - Dyspnoea [Not Recovered/Not Resolved]
  - Lacrimation increased [Not Recovered/Not Resolved]
  - Increased viscosity of bronchial secretion [Unknown]
  - Hypersensitivity [Not Recovered/Not Resolved]
  - Sputum discoloured [Unknown]
  - Asthma [Unknown]
  - Oxygen therapy [Unknown]
  - Bronchitis [Unknown]
  - Immunosuppression [Not Recovered/Not Resolved]
  - Increased bronchial secretion [Unknown]
  - Bronchitis viral [Unknown]
  - Malaise [Not Recovered/Not Resolved]

NARRATIVE: CASE EVENT DATE: 2017
